FAERS Safety Report 6403033-9 (Version None)
Quarter: 2009Q4

REPORT INFORMATION
  Report Type: 
  Country: None (occurrence: None)
  Receive Date: 20091015
  Receipt Date: 20091015
  Transmission Date: 20100525
  Serious: Yes (Other)
  Sender: FDA-Public Use
  Company Number: None

PATIENT
  Age: 22 Year
  Sex: Male

DRUGS (1)
  1. TUBERSOL [Suspect]
     Indication: TUBERCULIN TEST
     Dosage: 0.1 ML ONCE ID
     Route: 023
     Dates: start: 20091005, end: 20091007

REACTIONS (2)
  - RASH GENERALISED [None]
  - RESPIRATORY DISORDER [None]
